FAERS Safety Report 7659146-7 (Version None)
Quarter: 2011Q3

REPORT INFORMATION
  Report Type: 
  Country: None (occurrence: None)
  Receive Date: 20110805
  Receipt Date: 20110729
  Transmission Date: 20111222
  Serious: Yes (Hospitalization)
  Sender: FDA-Public Use
  Company Number: US-GLAXOSMITHKLINE-A0939704A

PATIENT
  Age: 52 Year
  Sex: Female
  Weight: 52.2 kg

DRUGS (2)
  1. AMIODARONE HCL [Suspect]
     Indication: SUPRAVENTRICULAR TACHYCARDIA
  2. FLOLAN [Suspect]
     Indication: PULMONARY HYPERTENSION
     Dates: start: 20030612

REACTIONS (4)
  - RASH VESICULAR [None]
  - SUPRAVENTRICULAR TACHYCARDIA [None]
  - BLISTER [None]
  - SKIN REACTION [None]
